FAERS Safety Report 16562312 (Version 1)
Quarter: 2019Q3

REPORT INFORMATION
  Report Type: Spontaneous
  Country: GR (occurrence: GR)
  Receive Date: 20190711
  Receipt Date: 20190711
  Transmission Date: 20191004
  Serious: Yes (Hospitalization)
  Sender: FDA-Public Use
  Company Number: GR-MYLANLABS-2019M1063905

PATIENT
  Age: 72 Year
  Sex: Female
  Weight: 60 kg

DRUGS (6)
  1. CALCITONIN [Concomitant]
     Active Substance: CALCITONIN
     Dosage: UNK
  2. SIMVACOR [Concomitant]
     Active Substance: SIMVASTATIN
     Dosage: UNK
  3. EXFORGE [Concomitant]
     Active Substance: AMLODIPINE BESYLATE\VALSARTAN
     Dosage: UNK
  4. MELOXICAM. [Suspect]
     Active Substance: MELOXICAM
     Indication: BACK PAIN
     Dosage: 15 MILLIGRAM, QD
     Route: 048
     Dates: start: 20110830, end: 20110914
  5. CALCIORAL                          /00207901/ [Concomitant]
     Active Substance: CALCIUM PHOSPHATE\ERGOCALCIFEROL
     Dosage: UNK
  6. FILICINE [Concomitant]
     Dosage: UNK

REACTIONS (3)
  - Drug eruption [Recovering/Resolving]
  - Rash [Recovering/Resolving]
  - Rash erythematous [Recovering/Resolving]

NARRATIVE: CASE EVENT DATE: 20110914
